FAERS Safety Report 5860199-7 (Version None)
Quarter: 2008Q3

REPORT INFORMATION
  Report Type: 
  Country: None (occurrence: None)
  Receive Date: 20080827
  Receipt Date: 20080814
  Transmission Date: 20090109
  Serious: Yes (Other)
  Sender: FDA-Public Use
  Company Number: FR-ELI_LILLY_AND_COMPANY-FR200805005258

PATIENT
  Sex: Female
  Weight: 52 kg

DRUGS (4)
  1. CYMBALTA [Suspect]
     Indication: DEPRESSION
     Dosage: 60 MG, DAILY (1/D)
     Route: 048
     Dates: start: 20080425, end: 20080427
  2. TEGRETOL [Concomitant]
     Indication: DYSTHYMIC DISORDER
     Dosage: 800 MG, DAILY (1/D)
     Route: 048
  3. MEPRONIZINE [Concomitant]
     Dosage: UNK, UNKNOWN
     Route: 048
  4. FORLAX [Concomitant]
     Dosage: UNK, UNKNOWN
     Route: 065

REACTIONS (2)
  - CONVULSION [None]
  - HYPONATRAEMIA [None]
